FAERS Safety Report 5535765-9 (Version None)
Quarter: 2007Q4

REPORT INFORMATION
  Report Type: 
  Country: None (occurrence: None)
  Receive Date: 20071203
  Receipt Date: 20071203
  Transmission Date: 20080405
  Serious: Yes (Hospitalization)
  Sender: FDA-Public Use
  Company Number: None

PATIENT
  Age: 79 Year
  Sex: Male

DRUGS (1)
  1. POTASSIUM CHLORIDE [Suspect]
     Indication: MINERAL SUPPLEMENTATION
     Dosage: 60MEQ EVERY DAY PO
     Route: 048
     Dates: start: 20071001, end: 20071101

REACTIONS (2)
  - BLOOD POTASSIUM INCREASED [None]
  - CONFUSIONAL STATE [None]
